FAERS Safety Report 7065175-7 (Version None)
Quarter: 2010Q4

REPORT INFORMATION
  Report Type: 
  Country: None (occurrence: None)
  Receive Date: 20101027
  Receipt Date: 20101012
  Transmission Date: 20110411
  Serious: Yes (Other)
  Sender: FDA-Public Use
  Company Number: GB-JNJFOC-20101006659

PATIENT
  Age: 42 Year
  Sex: Male

DRUGS (8)
  1. TRAMADOL HYDROCHLORIDE [Suspect]
     Indication: BACK PAIN
     Route: 065
  2. CODEINE [Suspect]
     Indication: BACK PAIN
     Route: 065
  3. MORPHINE [Suspect]
     Indication: BACK PAIN
     Route: 065
  4. ASPIRIN [Concomitant]
  5. PROPRANOLOL [Concomitant]
  6. OMEPRAZOLE [Concomitant]
  7. FLUOXETINE [Concomitant]
  8. LOPERAMIDE [Concomitant]

REACTIONS (1)
  - SECONDARY HYPOGONADISM [None]
